FAERS Safety Report 21363275 (Version 1)
Quarter: 2022Q3

REPORT INFORMATION
  Report Type: Spontaneous
  Country: IT (occurrence: IT)
  Receive Date: 20220922
  Receipt Date: 20220922
  Transmission Date: 20221026
  Serious: Yes (Other)
  Sender: FDA-Public Use
  Company Number: IT-CELLTRION INC.-2022IT015198

PATIENT

DRUGS (19)
  1. RITUXIMAB [Suspect]
     Active Substance: RITUXIMAB
     Indication: Diffuse large B-cell lymphoma stage IV
     Dosage: 5 CYCLE
     Route: 065
     Dates: start: 2020
  2. OXALIPLATIN [Suspect]
     Active Substance: OXALIPLATIN
     Indication: Diffuse large B-cell lymphoma stage IV
     Dosage: 2 CYCLE
     Route: 065
     Dates: start: 2020
  3. CYCLOPHOSPHAMIDE [Suspect]
     Active Substance: CYCLOPHOSPHAMIDE
     Indication: Diffuse large B-cell lymphoma stage IV
     Dosage: 5 CYCLE
     Route: 065
     Dates: start: 2020
  4. CYTARABINE [Suspect]
     Active Substance: CYTARABINE
     Indication: Diffuse large B-cell lymphoma stage IV
     Dosage: 2 CYCLE
     Route: 065
     Dates: start: 2020
  5. CYTARABINE [Suspect]
     Active Substance: CYTARABINE
     Indication: Autologous haematopoietic stem cell transplant
  6. METHOTREXATE [Suspect]
     Active Substance: METHOTREXATE
     Indication: Diffuse large B-cell lymphoma stage IV
     Dosage: 1 CYCLE -HIGH DOSE
     Route: 065
     Dates: start: 2020
  7. DOXORUBICIN [Suspect]
     Active Substance: DOXORUBICIN
     Indication: Diffuse large B-cell lymphoma stage IV
     Dosage: 5 CYCLE
     Route: 065
     Dates: start: 2020
  8. ETOPOSIDE [Suspect]
     Active Substance: ETOPOSIDE
     Indication: Diffuse large B-cell lymphoma stage IV
     Route: 065
     Dates: start: 2020
  9. ETOPOSIDE [Suspect]
     Active Substance: ETOPOSIDE
     Indication: Autologous haematopoietic stem cell transplant
  10. VINCRISTINE [Suspect]
     Active Substance: VINCRISTINE
     Indication: Diffuse large B-cell lymphoma stage IV
     Dosage: 5 CYCLE
     Route: 065
     Dates: start: 2020
  11. MELPHALAN [Suspect]
     Active Substance: MELPHALAN
     Indication: Diffuse large B-cell lymphoma stage IV
     Route: 065
     Dates: start: 2020
  12. MELPHALAN [Suspect]
     Active Substance: MELPHALAN
     Indication: Autologous haematopoietic stem cell transplant
  13. FOTEMUSTINE [Suspect]
     Active Substance: FOTEMUSTINE
     Indication: Diffuse large B-cell lymphoma stage IV
     Route: 065
     Dates: start: 2020
  14. FOTEMUSTINE [Suspect]
     Active Substance: FOTEMUSTINE
     Indication: Autologous haematopoietic stem cell transplant
  15. TOCILIZUMAB [Concomitant]
     Active Substance: TOCILIZUMAB
     Indication: Cytokine release syndrome
     Dosage: FOUR DOSES
  16. TISAGENLECLEUCEL [Concomitant]
     Active Substance: TISAGENLECLEUCEL
     Indication: Lymphodepletion
  17. DEXAMETHASONE [Concomitant]
     Active Substance: DEXAMETHASONE
     Indication: Cytokine release syndrome
     Dosage: SINGLE DOSE
  18. THIOTEPA [Concomitant]
     Active Substance: THIOTEPA
  19. FLUDARABINE [Concomitant]
     Active Substance: FLUDARABINE PHOSPHATE
     Indication: Lymphodepletion

REACTIONS (3)
  - Staphylococcal sepsis [Unknown]
  - Disease progression [Recovered/Resolved]
  - Human herpesvirus 6 infection [Unknown]

NARRATIVE: CASE EVENT DATE: 20200101
